FAERS Safety Report 16782206 (Version 1)
Quarter: 2019Q3

REPORT INFORMATION
  Report Type: Report from Study
  Country: ES (occurrence: ES)
  Receive Date: 20190906
  Receipt Date: 20190906
  Transmission Date: 20191005
  Serious: Yes (Death, Hospitalization)
  Sender: FDA-Public Use
  Company Number: PHHO2006ES022768

PATIENT
  Age: 60 Year
  Sex: Female
  Weight: 84 kg

DRUGS (5)
  1. HERCEPTIN [Suspect]
     Active Substance: TRASTUZUMAB
     Indication: BREAST CANCER METASTATIC
     Dosage: 4 MG/KG, UNK
     Route: 042
     Dates: start: 20061024, end: 20061204
  2. HERCEPTIN [Suspect]
     Active Substance: TRASTUZUMAB
     Dosage: 2 MG/KG, QW
     Route: 042
     Dates: start: 20061031
  3. OMEPRAZOLE. [Concomitant]
     Active Substance: OMEPRAZOLE
     Indication: PROPHYLAXIS
     Dosage: 20 MG, QD
     Route: 048
     Dates: start: 20061204, end: 20061209
  4. TYKERB [Suspect]
     Active Substance: LAPATINIB DITOSYLATE
     Indication: BREAST CANCER METASTATIC
     Dosage: 1000 MG, QD
     Route: 048
     Dates: start: 20061024, end: 20061204
  5. MYOCET [Concomitant]
     Active Substance: DOXORUBICIN
     Indication: CHEMOTHERAPY
     Dosage: 600 MG
     Route: 065
     Dates: start: 20051109, end: 20060309

REACTIONS (2)
  - Pulmonary embolism [Fatal]
  - Cardiac failure [Fatal]

NARRATIVE: CASE EVENT DATE: 20061204
